FAERS Safety Report 17439349 (Version 1)
Quarter: 2020Q1

REPORT INFORMATION
  Report Type: Spontaneous
  Country: US (occurrence: US)
  Receive Date: 20200219
  Receipt Date: 20200219
  Transmission Date: 20200409
  Serious: Yes (Other)
  Sender: FDA-Public Use
  Company Number: None

PATIENT
  Age: 21 Year
  Sex: Male
  Weight: 84 kg

DRUGS (6)
  1. LEVOTHYROXINE 125 MCG DAILY [Concomitant]
  2. METFORMIN 1500MG DAILY [Concomitant]
  3. CHLORPROMAZINE 75MG BID [Concomitant]
  4. OLANZAPINE 30MG DAILY [Concomitant]
  5. GUANFACINE 3MG HS [Concomitant]
  6. DIVALPROEX ER [Suspect]
     Active Substance: DIVALPROEX SODIUM
     Indication: AFFECTIVE DISORDER
     Route: 048

REACTIONS (2)
  - Thrombocytopenia [None]
  - Platelet count decreased [None]

NARRATIVE: CASE EVENT DATE: 20191218
